FAERS Safety Report 12913609 (Version 3)
Quarter: 2016Q4

REPORT INFORMATION
  Report Type: Spontaneous
  Country: JP (occurrence: JP)
  Receive Date: 20161104
  Receipt Date: 20161226
  Transmission Date: 20170207
  Serious: Yes (Other)
  Sender: FDA-Public Use
  Company Number: JP-GILEAD-2016-0241568

PATIENT
  Age: 66 Year
  Sex: Male

DRUGS (4)
  1. HEPSERA [Suspect]
     Active Substance: ADEFOVIR DIPIVOXIL
     Dosage: 10 MG, QD
     Route: 048
     Dates: start: 20070907, end: 20160714
  2. HEPSERA [Suspect]
     Active Substance: ADEFOVIR DIPIVOXIL
     Indication: CHRONIC HEPATITIS B
     Dosage: 10 MG, QD
     Route: 048
     Dates: start: 20070907, end: 20160714
  3. ZEFIX [Suspect]
     Active Substance: LAMIVUDINE
     Indication: CHRONIC HEPATITIS B
     Dosage: 100 MG, QD
     Route: 048
     Dates: start: 2002, end: 20160714
  4. AMLODIPINE [Concomitant]
     Active Substance: AMLODIPINE BESYLATE
     Dosage: 5 MG, QD
     Dates: start: 20071130

REACTIONS (12)
  - Fracture [Unknown]
  - Hypophosphataemia [Recovering/Resolving]
  - Hepatitis B DNA increased [Recovered/Resolved]
  - Pain in extremity [Recovering/Resolving]
  - Back pain [Unknown]
  - Bone pain [Unknown]
  - Osteomalacia [Recovering/Resolving]
  - Bladder cancer [Unknown]
  - Nephrolithiasis [Unknown]
  - Fractured ischium [Unknown]
  - Haematuria [Unknown]
  - Fanconi syndrome acquired [Recovering/Resolving]

NARRATIVE: CASE EVENT DATE: 20070706
